FAERS Safety Report 8130199-5 (Version None)
Quarter: 2012Q1

REPORT INFORMATION
  Report Type: 
  Country: None (occurrence: None)
  Receive Date: 20120210
  Receipt Date: 20120127
  Transmission Date: 20120608
  Serious: Yes (Other)
  Sender: FDA-Public Use
  Company Number: PHHY2012PL007018

PATIENT
  Sex: Female

DRUGS (1)
  1. EXTAVIA [Suspect]

REACTIONS (1)
  - LIVER INJURY [None]
